FAERS Safety Report 7860441-7 (Version None)
Quarter: 2011Q4

REPORT INFORMATION
  Report Type: 
  Country: None (occurrence: None)
  Receive Date: 20111027
  Receipt Date: 20111020
  Transmission Date: 20120403
  Serious: Yes (Death)
  Sender: FDA-Public Use
  Company Number: PHEH2011US07633

PATIENT
  Sex: Male

DRUGS (1)
  1. TOBI [Suspect]
     Indication: CYSTIC FIBROSIS
     Dosage: 300 MG, INHALE 1 VIAL VIA NEBULIZER TWICE A DAY FOR 2 WEEKS EVERY MONTH
     Dates: start: 20090519

REACTIONS (1)
  - CEREBROVASCULAR ACCIDENT [None]
